FAERS Safety Report 10219416 (Version 1)
Quarter: 2014Q1

REPORT INFORMATION
  Report Type: Spontaneous
  Country: US (occurrence: None)
  Receive Date: 20140306
  Receipt Date: 20140306
  Transmission Date: 20141002
  Serious: Yes (Hospitalization)
  Sender: FDA-Public Use
  Company Number: 163-21880-13100745

PATIENT
  Age: 82 Year
  Sex: Female

DRUGS (9)
  1. REVLIMID [Suspect]
     Indication: PLASMA CELL MYELOMA
     Route: 048
     Dates: start: 201208
  2. CYMBALTA [Concomitant]
  3. CYCLOPHOSPHAMIDE (CYCLOPHOSPHAMIDE) (TABLETS) [Concomitant]
  4. DEXAMETHASONE (DEXAMETHASONE) (TABLETS) [Concomitant]
  5. FUROSEMIDE (FUROSEMIDE) (TABLETS) [Concomitant]
  6. LYRICA (PREGABALIN) (CAPSULES) [Concomitant]
  7. SYNTHROID (LEVOTHYROXINE SODIUM) (TABLETS) [Concomitant]
  8. AZITHROMYCIN (AZITHROMYCIN) (TABLETS) [Concomitant]
  9. CYCLOBENZAPRINE (CYCLOBENZAPRINE) (TABLETS) [Concomitant]

REACTIONS (1)
  - Malaise [None]
